FAERS Safety Report 7590286-7 (Version None)
Quarter: 2011Q3

REPORT INFORMATION
  Report Type: 
  Country: None (occurrence: None)
  Receive Date: 20110705
  Receipt Date: 20091113
  Transmission Date: 20111222
  Serious: Yes (Other)
  Sender: FDA-Public Use
  Company Number: US-BAYER-200939249NA

PATIENT
  Age: 48 Year
  Sex: Male
  Weight: 72.562 kg

DRUGS (31)
  1. PROTONIX [Concomitant]
     Dosage: 40 MG, QD
     Dates: start: 20050416, end: 20050509
  2. TOPROL-XL [Concomitant]
     Dosage: 100 DAILY
     Dates: start: 20040304, end: 20050509
  3. SPIRONOLACTONE [Concomitant]
     Dosage: 25 MG, QD
     Route: 048
  4. METOPROLOL TARTRATE [Concomitant]
     Dosage: 100 MG, QD
     Dates: start: 20050519
  5. NEXIUM [Concomitant]
     Dosage: 40 MG, QD
     Dates: start: 20050519
  6. COREG [Concomitant]
     Dosage: 6.25 MG, BID, RESTARTED
     Route: 048
     Dates: start: 20040204, end: 20050509
  7. ZOCOR [Concomitant]
     Dosage: 20 MG, QD
     Dates: start: 20050416, end: 20050509
  8. PERCOCET [Concomitant]
     Indication: PAIN
     Dosage: UNK UNK, PRN
     Dates: start: 20050416, end: 20050509
  9. ZOCOR [Concomitant]
     Dosage: 40 MG, QD
     Dates: start: 20050519
  10. PROTAMINE SULFATE [Concomitant]
     Dosage: UNK
     Route: 042
     Dates: start: 20050509
  11. LASIX [Concomitant]
     Dosage: 80 MG, BID, ERRATIC USE
     Route: 048
  12. LASIX [Concomitant]
     Dosage: 80 MG, BID, RESTARTED
     Route: 048
     Dates: start: 20040204, end: 20050509
  13. IMDUR [Concomitant]
     Dosage: 30 MG, QD, ERRATIC USE
     Dates: start: 20040213, end: 20050509
  14. AMOXICILLIN [Concomitant]
     Dosage: 5000 MG, UNK
     Route: 048
     Dates: start: 20050420, end: 20050504
  15. CAPTOPRIL [Concomitant]
     Dosage: 12.5 MG, TID
     Dates: end: 20050416
  16. LISINOPRIL [Concomitant]
     Dosage: 40 MG, QD
     Dates: start: 20050519
  17. MILRINONE [Concomitant]
     Dosage: UNK
     Route: 042
     Dates: start: 20050509
  18. LOPRESSOR [Concomitant]
     Dosage: 25 MG, BID
     Dates: end: 20050416
  19. CLOPIDOGREL [Concomitant]
     Dosage: 75 MG, QD
     Dates: start: 20050519
  20. TRASYLOL [Suspect]
     Indication: PRODUCT USED FOR UNKNOWN INDICATION
     Dosage: SIX 100 ML VIALS APROTININ
     Route: 042
     Dates: start: 20050509
  21. COREG [Concomitant]
     Dosage: 6.25 MG, BID, ERRATIC USE
     Route: 048
  22. GLYBURIDE [Concomitant]
     Dosage: 5 MG, BID
     Route: 048
     Dates: start: 20050519
  23. PRINIVIL [Concomitant]
     Dosage: 20 MG, QD, ERRATIC USE
     Dates: start: 20040213, end: 20050509
  24. GLIPIZIDE [Concomitant]
     Dosage: 5 DAILY
     Dates: start: 20040304, end: 20050509
  25. SERTRALINE HYDROCHLORIDE [Concomitant]
     Dosage: 50 MG, UNK
     Route: 048
  26. GLYBURIDE [Concomitant]
     Dosage: 5 MG, BID, ERRATIC USE
     Route: 048
  27. LOVENOX [Concomitant]
     Dosage: UNK
     Dates: start: 20050416, end: 20050509
  28. DIGOXIN [Concomitant]
     Dosage: 0.125 MG, QD
     Route: 048
     Dates: start: 20050519
  29. LEVOPHED [Concomitant]
     Dosage: UNK
     Route: 042
     Dates: start: 20050509
  30. CAPTOPRIL [Concomitant]
     Dosage: 25 MG, TID
     Route: 048
     Dates: start: 20050416, end: 20050509
  31. HYDRALAZINE HCL [Concomitant]
     Dosage: 25 MG, QD

REACTIONS (12)
  - EMOTIONAL DISTRESS [None]
  - RENAL FAILURE [None]
  - INJURY [None]
  - STRESS [None]
  - ANXIETY [None]
  - MYOCARDIAL INFARCTION [None]
  - PAIN [None]
  - RENAL INJURY [None]
  - DEPRESSION [None]
  - CARDIAC FAILURE CONGESTIVE [None]
  - UNEVALUABLE EVENT [None]
  - FEAR [None]
